FAERS Safety Report 5518504-7 (Version None)
Quarter: 2007Q4

REPORT INFORMATION
  Report Type: 
  Country: None (occurrence: None)
  Receive Date: 20071113
  Receipt Date: 20071113
  Transmission Date: 20080405
  Serious: Yes (Death)
  Sender: FDA-Public Use
  Company Number: None

PATIENT
  Age: 87 Year
  Sex: Male

DRUGS (14)
  1. PROPOFOL [Suspect]
     Indication: LIGHT ANAESTHESIA
     Dates: start: 20060921, end: 20060921
  2. FENTANYL [Suspect]
     Indication: LIGHT ANAESTHESIA
     Dates: start: 20060921, end: 20060921
  3. ZOLPIDEM TARTRATE [Concomitant]
  4. FLOMAX [Concomitant]
  5. ZOCOR [Concomitant]
  6. PREDNISONE TAB [Concomitant]
  7. LISINOPRIL [Concomitant]
  8. MESALAMINE [Concomitant]
  9. PROSCAR [Concomitant]
  10. ATENOLOL [Concomitant]
  11. AMPICILLIN [Concomitant]
  12. PERCOCET [Concomitant]
  13. PLAVIX [Concomitant]
  14. ASPIRIN [Concomitant]

REACTIONS (3)
  - CARDIO-RESPIRATORY ARREST [None]
  - NERVOUS SYSTEM DISORDER [None]
  - PROCEDURAL COMPLICATION [None]
